FAERS Safety Report 7297949-1 (Version None)
Quarter: 2011Q1

REPORT INFORMATION
  Report Type: 
  Country: None (occurrence: None)
  Receive Date: 20110217
  Receipt Date: 20110210
  Transmission Date: 20110831
  Serious: Yes (Other)
  Sender: FDA-Public Use
  Company Number: US-TYCO HEALTHCARE/MALLINCKRODT-T201100288

PATIENT

DRUGS (1)
  1. OXYCODONE [Suspect]
     Dosage: 1/2 TABLET
     Dates: start: 20101119

REACTIONS (9)
  - COGNITIVE DISORDER [None]
  - MALAISE [None]
  - DECREASED APPETITE [None]
  - GASTROINTESTINAL DISORDER [None]
  - INSOMNIA [None]
  - HEADACHE [None]
  - RENAL DISORDER [None]
  - TREMOR [None]
  - MIOSIS [None]
